FAERS Safety Report 8784261 (Version 1)
Quarter: 2012Q4

REPORT INFORMATION
  Report Type: Spontaneous
  Country: US (occurrence: None)
  Receive Date: 20120905
  Receipt Date: 20120905
  Transmission Date: 20130627
  Serious: Yes (Life-Threatening, Hospitalization)
  Sender: FDA-Public Use
  Company Number: None

PATIENT
  Age: 86 Year
  Sex: Male
  Weight: 40.82 kg

DRUGS (1)
  1. PRADAXA 150MG BOEHRINGER INGLEHEIM [Suspect]

REACTIONS (1)
  - Cerebrovascular accident [None]
